FAERS Safety Report 20503837 (Version 7)
Quarter: 2022Q3

REPORT INFORMATION
  Report Type: Report from Study
  Country: CA (occurrence: CA)
  Receive Date: 20220222
  Receipt Date: 20220817
  Transmission Date: 20221026
  Serious: Yes (Death, Hospitalization, Other)
  Sender: FDA-Public Use
  Company Number: CA-OTSUKA-2022_006152

PATIENT
  Age: 79 Year
  Sex: Female

DRUGS (7)
  1. CEDAZURIDINE\DECITABINE [Suspect]
     Active Substance: CEDAZURIDINE\DECITABINE
     Indication: Myelodysplastic syndrome
     Dosage: UNK, (35 MG DECITABINE AND 100 MG CEDAZURIDINE)
     Route: 065
     Dates: start: 20220212
  2. CEDAZURIDINE\DECITABINE [Suspect]
     Active Substance: CEDAZURIDINE\DECITABINE
     Dosage: 4 PILLS PER CYCLE
     Route: 065
     Dates: start: 202205
  3. ATIVAN [Concomitant]
     Active Substance: LORAZEPAM
     Indication: Product used for unknown indication
     Dosage: UNK
     Route: 065
  4. TYLENOL [Concomitant]
     Active Substance: ACETAMINOPHEN
     Indication: Product used for unknown indication
     Dosage: UNK
     Route: 065
  5. EPREX [Concomitant]
     Active Substance: ERYTHROPOIETIN
     Indication: Product used for unknown indication
     Dosage: UNK
     Route: 065
  6. VITAMIN B [Concomitant]
     Active Substance: VITAMIN B
     Indication: Product used for unknown indication
     Dosage: UNK
     Route: 065
  7. ASPIRIN [Concomitant]
     Active Substance: ASPIRIN
     Indication: Product used for unknown indication
     Dosage: UNK
     Route: 065

REACTIONS (17)
  - Death [Fatal]
  - Transfusion [Unknown]
  - Transfusion [Unknown]
  - Pulmonary oedema [Unknown]
  - Haemoglobin decreased [Unknown]
  - Pneumonia [Unknown]
  - Platelet count decreased [Recovered/Resolved]
  - Neutrophil count decreased [Unknown]
  - Dyspepsia [Recovered/Resolved]
  - Ageusia [Unknown]
  - Skin plaque [Unknown]
  - Dry skin [Recovering/Resolving]
  - COVID-19 [Unknown]
  - Dyspnoea [Recovering/Resolving]
  - Product use issue [Unknown]
  - Therapy interrupted [Unknown]
  - Drug ineffective [Unknown]

NARRATIVE: CASE EVENT DATE: 20220215
